FAERS Safety Report 13557504 (Version 1)
Quarter: 2017Q2

REPORT INFORMATION
  Report Type: Spontaneous
  Country: US (occurrence: US)
  Receive Date: 20170517
  Receipt Date: 20170517
  Transmission Date: 20170830
  Serious: No
  Sender: FDA-Public Use
  Company Number: None

PATIENT
  Age: 62 Year
  Sex: Female

DRUGS (1)
  1. IBRANCE [Suspect]
     Active Substance: PALBOCICLIB
     Indication: NEOPLASM MALIGNANT
     Dosage: 125MG DAILY FOR 21 DAYS OF A 28 DAY CYCLE ORAL
     Route: 048
     Dates: start: 20170510

REACTIONS (1)
  - Sinusitis [None]

NARRATIVE: CASE EVENT DATE: 20170514
